FAERS Safety Report 20615170 (Version 2)
Quarter: 2022Q2

REPORT INFORMATION
  Report Type: Spontaneous
  Country: US (occurrence: US)
  Receive Date: 20220321
  Receipt Date: 20220426
  Transmission Date: 20220721
  Serious: No
  Sender: FDA-Public Use
  Company Number: US-ORGANON-O2203USA001326

PATIENT
  Age: 20 Year
  Sex: Female
  Weight: 75 kg

DRUGS (3)
  1. NEXPLANON [Suspect]
     Active Substance: ETONOGESTREL
     Indication: Dysmenorrhoea
     Dosage: 68 MG ROD (1 IMPLANT) IN LEFT UPPER ARM
     Route: 059
     Dates: start: 20210223, end: 20220308
  2. NEXPLANON [Suspect]
     Active Substance: ETONOGESTREL
     Indication: Contraception
  3. NEXPLANON [Concomitant]
     Active Substance: ETONOGESTREL
     Dosage: 1 IMPLANT
     Route: 059

REACTIONS (9)
  - Implant site urticaria [Recovering/Resolving]
  - Implant site rash [Recovering/Resolving]
  - Implant site bruising [Unknown]
  - Implant site discolouration [Recovering/Resolving]
  - Mood swings [Unknown]
  - Weight increased [Unknown]
  - Device breakage [Recovered/Resolved]
  - Device kink [Recovered/Resolved]
  - Product use in unapproved indication [Unknown]

NARRATIVE: CASE EVENT DATE: 20210223
